FAERS Safety Report 7376084-8 (Version None)
Quarter: 2011Q1

REPORT INFORMATION
  Report Type: 
  Country: None (occurrence: None)
  Receive Date: 20110325
  Receipt Date: 20110315
  Transmission Date: 20110831
  Serious: Yes (Other)
  Sender: FDA-Public Use
  Company Number: US-WATSON-2011-03372

PATIENT
  Sex: Male

DRUGS (4)
  1. REGLAN [Suspect]
     Indication: PRODUCT USED FOR UNKNOWN INDICATION
     Dosage: UNK
     Route: 048
     Dates: start: 20070901, end: 20090701
  2. REGLAN [Suspect]
     Dosage: UNK
     Route: 048
     Dates: start: 20051201
  3. METOCLOPRAMIDE HYDROCHLORIDE [Suspect]
     Indication: PRODUCT USED FOR UNKNOWN INDICATION
     Dosage: UNK
     Route: 048
     Dates: start: 20070901, end: 20090701
  4. METOCLOPRAMIDE HYDROCHLORIDE [Suspect]
     Dosage: UNK
     Route: 048
     Dates: start: 20051201

REACTIONS (7)
  - MYOCLONUS [None]
  - TONGUE DISORDER [None]
  - INCORRECT DRUG ADMINISTRATION DURATION [None]
  - DYSKINESIA [None]
  - TREMOR [None]
  - BRUXISM [None]
  - MUSCLE TWITCHING [None]
